FAERS Safety Report 7393750-9 (Version None)
Quarter: 2011Q2

REPORT INFORMATION
  Report Type: 
  Country: None (occurrence: None)
  Receive Date: 20110405
  Receipt Date: 20110330
  Transmission Date: 20111010
  Serious: Yes (Death, Hospitalization, Other)
  Sender: FDA-Public Use
  Company Number: JP-ASTELLAS-2011JP000969

PATIENT
  Age: 52 Year
  Sex: Female

DRUGS (7)
  1. PREDONINE [Suspect]
     Dosage: 20 MG, UNKNOWN/D
     Route: 048
     Dates: start: 19980702
  2. MYCOPHENOLATE MOFETIL [Suspect]
     Indication: IMMUNOSUPPRESSANT DRUG THERAPY
     Dosage: UNK
     Route: 048
     Dates: start: 20050601, end: 20090701
  3. PROGRAF [Suspect]
     Indication: IMMUNOSUPPRESSANT DRUG THERAPY
     Dosage: 4.5 MG, UNKNOWN/D
     Route: 048
     Dates: start: 19980702, end: 20090615
  4. PROGRAF [Suspect]
     Dosage: UNK
     Route: 048
  5. MIZORIBINE [Concomitant]
     Indication: IMMUNOSUPPRESSANT DRUG THERAPY
     Route: 065
  6. PREDONINE [Suspect]
     Indication: IMMUNOSUPPRESSANT DRUG THERAPY
     Route: 048
  7. PREDONINE [Suspect]
     Dosage: 5 MG, UNKNOWN/D
     Route: 048

REACTIONS (4)
  - DRUG INEFFECTIVE [None]
  - KIDNEY TRANSPLANT REJECTION [None]
  - INFECTION [None]
  - LYMPHOPROLIFERATIVE DISORDER [None]
